FAERS Safety Report 9160475 (Version 2)
Quarter: 2013Q2

REPORT INFORMATION
  Report Type: Spontaneous
  Country: AT (occurrence: AT)
  Receive Date: 20130313
  Receipt Date: 20130506
  Transmission Date: 20140414
  Serious: Yes (Hospitalization, Other)
  Sender: FDA-Public Use
  Company Number: PHHY2013AT022703

PATIENT
  Sex: Male

DRUGS (6)
  1. GILENYA [Suspect]
     Indication: RELAPSING-REMITTING MULTIPLE SCLEROSIS
     Dosage: 0.5 MG, QD
     Route: 048
  2. VESICARE [Concomitant]
     Dosage: 5 MG, QD
     Route: 048
  3. LEGALON [Concomitant]
     Dosage: 140 MG, QD
     Route: 048
  4. VERMOX [Concomitant]
     Route: 048
  5. PK-MERZ [Concomitant]
     Route: 048
  6. MELATONIN [Concomitant]
     Route: 048

REACTIONS (5)
  - Cerebrovascular accident [Recovering/Resolving]
  - Ischaemia [Unknown]
  - Sensory loss [Unknown]
  - Motor dysfunction [Unknown]
  - Limb discomfort [Unknown]
